FAERS Safety Report 5460085-0 (Version None)
Quarter: 2007Q3

REPORT INFORMATION
  Report Type: 
  Country: None (occurrence: None)
  Receive Date: 20070919
  Receipt Date: 20070912
  Transmission Date: 20080115
  Serious: Yes (Hospitalization)
  Sender: FDA-Public Use
  Company Number: IT-SANOFI-SYNTHELABO-A06200700420

PATIENT
  Sex: Female

DRUGS (7)
  1. MOTILEX [Concomitant]
     Indication: DRUG USE FOR UNKNOWN INDICATION
     Dosage: UNK
     Route: 048
     Dates: start: 20061201, end: 20070618
  2. ALIFLUS DISKUS [Concomitant]
     Indication: DRUG USE FOR UNKNOWN INDICATION
     Route: 055
  3. ASPIRIN [Concomitant]
     Indication: DRUG USE FOR UNKNOWN INDICATION
     Route: 048
  4. TRIATEC [Concomitant]
     Indication: DRUG USE FOR UNKNOWN INDICATION
     Route: 048
     Dates: start: 20070330, end: 20070623
  5. RABEPRAZOLE SODIUM [Suspect]
     Indication: PROPHYLAXIS AGAINST GASTROINTESTINAL ULCER
     Route: 048
     Dates: start: 20070330, end: 20070623
  6. TOTALIP [Suspect]
     Indication: DYSLIPIDAEMIA
     Route: 048
     Dates: start: 20070330, end: 20070623
  7. PLAVIX [Suspect]
     Indication: ANTICOAGULANT THERAPY
     Route: 048
     Dates: start: 20070330, end: 20070623

REACTIONS (10)
  - AMNESIA [None]
  - ANTI-THYROID ANTIBODY POSITIVE [None]
  - BLOOD THYROID STIMULATING HORMONE INCREASED [None]
  - CONFUSIONAL STATE [None]
  - DYSLEXIA [None]
  - FINE MOTOR DELAY [None]
  - GAIT DISTURBANCE [None]
  - THYROXINE FREE DECREASED [None]
  - TREMOR [None]
  - TRI-IODOTHYRONINE FREE DECREASED [None]
